FAERS Safety Report 6549554-X (Version None)
Quarter: 2010Q1

REPORT INFORMATION
  Report Type: 
  Country: None (occurrence: None)
  Receive Date: 20100119
  Receipt Date: 20100104
  Transmission Date: 20100710
  Serious: Yes (Other)
  Sender: FDA-Public Use
  Company Number: 2009PV000081

PATIENT
  Age: 69 Year
  Sex: Male

DRUGS (6)
  1. DEPOCYT [Suspect]
     Indication: CHRONIC LYMPHOCYTIC LEUKAEMIA
     Dosage: 50 MG; 6X; INTH
     Route: 055
     Dates: start: 20090805, end: 20091110
  2. RITUXIMAB (RITUXIMAB) [Suspect]
     Indication: METASTASES TO MENINGES
     Dosage: 5X
     Dates: start: 20091110, end: 20091113
  3. CYCLOPHOSPHAMIDE [Suspect]
     Indication: CHRONIC LYMPHOCYTIC LEUKAEMIA
     Dosage: 5X
     Dates: start: 20091110, end: 20091113
  4. FLUDARABINE PHOSPHATE [Suspect]
     Indication: METASTASES TO MENINGES
     Dosage: 5X
     Dates: end: 20091113
  5. PREDNISONE [Concomitant]
  6. DEXAMETHASONE [Concomitant]

REACTIONS (5)
  - CAUDA EQUINA SYNDROME [None]
  - FAECAL INCONTINENCE [None]
  - POLYNEUROPATHY [None]
  - RADICULAR SYNDROME [None]
  - URINARY INCONTINENCE [None]
